FAERS Safety Report 9774945 (Version 1)
Quarter: 2013Q4

REPORT INFORMATION
  Report Type: Spontaneous
  Country: US (occurrence: US)
  Receive Date: 20131220
  Receipt Date: 20131220
  Transmission Date: 20140711
  Serious: No
  Sender: FDA-Public Use
  Company Number: US-GLAXOSMITHKLINE-A1022188A

PATIENT
  Sex: Male

DRUGS (4)
  1. AVODART [Suspect]
     Indication: RADIOTHERAPY TO PROSTATE
     Dosage: .5MG PER DAY
     Route: 048
     Dates: start: 20130419
  2. FLOMAX [Concomitant]
  3. CARDIZEM [Concomitant]
  4. DIOVAN [Concomitant]

REACTIONS (2)
  - Nocturia [Not Recovered/Not Resolved]
  - Sleep disorder [Unknown]
